FAERS Safety Report 4610435-X (Version None)
Quarter: 2005Q2

REPORT INFORMATION
  Report Type: 
  Country: None (occurrence: None)
  Receive Date: 20050301
  Receipt Date: 20041213
  Transmission Date: 20051028
  Serious: No
  Sender: FDA-Public Use
  Company Number: WAES0412USA01580

PATIENT

DRUGS (5)
  1. ZETIA [Suspect]
     Dosage: PO
     Route: 048
  2. COZAAR [Concomitant]
  3. PRAVACHOL [Concomitant]
  4. TENORMIN [Concomitant]
  5. ASPIRIN [Concomitant]

REACTIONS (1)
  - GLOSSODYNIA [None]
